FAERS Safety Report 13050582 (Version 1)
Quarter: 2016Q4

REPORT INFORMATION
  Report Type: Spontaneous
  Country: US (occurrence: US)
  Receive Date: 20161221
  Receipt Date: 20161221
  Transmission Date: 20170207
  Serious: No
  Sender: FDA-Public Use
  Company Number: US-NOVOPROD-503370

PATIENT
  Age: 53 Year
  Sex: Female

DRUGS (1)
  1. LEVEMIR [Suspect]
     Active Substance: INSULIN DETEMIR
     Indication: PRODUCT USED FOR UNKNOWN INDICATION
     Dosage: UNK
     Route: 058

REACTIONS (6)
  - Dyspepsia [Unknown]
  - Feeling abnormal [Unknown]
  - Muscular weakness [Unknown]
  - Joint swelling [Unknown]
  - Unevaluable event [Unknown]
  - Headache [Unknown]
